FAERS Safety Report 9818300 (Version 3)
Quarter: 2014Q1

REPORT INFORMATION
  Report Type: Report from Study
  Country: DE (occurrence: DE)
  Receive Date: 20140115
  Receipt Date: 20140218
  Transmission Date: 20141002
  Serious: Yes (Hospitalization)
  Sender: FDA-Public Use
  Company Number: DE-JNJFOC-20140103712

PATIENT
  Age: 56 Year
  Sex: Female
  Weight: 72 kg

DRUGS (13)
  1. REMICADE [Suspect]
     Indication: RHEUMATOID ARTHRITIS
     Route: 042
     Dates: start: 20130703
  2. REMICADE [Suspect]
     Indication: RHEUMATOID ARTHRITIS
     Route: 042
     Dates: start: 20131024
  3. REMICADE [Suspect]
     Indication: RHEUMATOID ARTHRITIS
     Route: 042
     Dates: start: 20130828
  4. FALITHROM [Concomitant]
     Indication: ARRHYTHMIA
     Route: 065
     Dates: start: 2012
  5. AMLODIPINE [Concomitant]
     Indication: HYPERTENSION
     Route: 065
     Dates: start: 2013
  6. METOPROLOL [Concomitant]
     Indication: HYPERTENSION
     Dosage: ^47,5MG^
     Route: 065
     Dates: start: 2005
  7. NOVORAPID [Concomitant]
     Indication: DIABETES MELLITUS
     Dosage: 18 IE
     Route: 065
     Dates: start: 2005
  8. LEVEMIR [Concomitant]
     Indication: DIABETES MELLITUS
     Dosage: 18 IE
     Route: 065
     Dates: start: 2005
  9. PREDNISOLONE [Concomitant]
     Indication: RHEUMATOID ARTHRITIS
     Route: 065
     Dates: start: 2005
  10. METHOTREXATE [Concomitant]
     Indication: RHEUMATOID ARTHRITIS
     Route: 065
     Dates: start: 2005
  11. VENLAFAXINE [Concomitant]
     Indication: DEPRESSION
     Route: 065
     Dates: start: 2008
  12. PIPAMPERONE [Concomitant]
     Indication: DEPRESSION
     Route: 065
     Dates: start: 2008
  13. RAMIPRIL [Concomitant]
     Indication: HYPERTENSION
     Route: 065
     Dates: start: 2013

REACTIONS (2)
  - Hypertensive crisis [Recovered/Resolved]
  - Angina pectoris [Recovered/Resolved]
